FAERS Safety Report 8159553-2 (Version None)
Quarter: 2012Q1

REPORT INFORMATION
  Report Type: 
  Country: None (occurrence: None)
  Receive Date: 20120223
  Receipt Date: 20120213
  Transmission Date: 20120608
  Serious: Yes (Death)
  Sender: FDA-Public Use
  Company Number: US-ROCHE-1039687

PATIENT

DRUGS (6)
  1. FLUDARABINE PHOSPHATE [Suspect]
     Indication: LYMPHOCYTIC LYMPHOMA
  2. CYCLOPHOSPHAMIDE [Suspect]
     Indication: CHRONIC LYMPHOCYTIC LEUKAEMIA
     Dosage: 25.-300MG/M2
     Route: 065
  3. FLUDARABINE PHOSPHATE [Suspect]
     Indication: CHRONIC LYMPHOCYTIC LEUKAEMIA
     Dosage: 25-30MG/M2
     Route: 065
  4. MABTHERA [Suspect]
     Indication: CHRONIC LYMPHOCYTIC LEUKAEMIA
     Dosage: 375-500MG/M2
     Route: 065
  5. MABTHERA [Suspect]
     Indication: LYMPHOCYTIC LYMPHOMA
  6. CYCLOPHOSPHAMIDE [Suspect]
     Indication: LYMPHOCYTIC LYMPHOMA

REACTIONS (1)
  - NEOPLASM [None]
